FAERS Safety Report 9265612 (Version 2)
Quarter: 2013Q2

REPORT INFORMATION
  Report Type: Report from Study
  Country: US (occurrence: US)
  Receive Date: 20130501
  Receipt Date: 20130502
  Transmission Date: 20140414
  Serious: Yes (Hospitalization)
  Sender: FDA-Public Use
  Company Number: US-009507513-1304USA015879

PATIENT
  Age: 57 Year
  Sex: Male
  Weight: 86.17 kg

DRUGS (7)
  1. PEGINTERFERON ALFA-2B [Suspect]
     Indication: HEPATITIS C
     Dosage: 120 MICROGRAM, QW
     Route: 058
     Dates: start: 20130403
  2. REBETOL [Suspect]
     Indication: HEPATITIS C
     Dosage: 1200 MG TWICE A DAY
     Route: 048
     Dates: start: 20130403
  3. ATAZANAVIR [Concomitant]
     Indication: HIV INFECTION
     Dosage: EVERY DAY SINCE 5 YEARS
     Route: 048
  4. RITONAVIR [Concomitant]
     Indication: HIV INFECTION
     Dosage: EVERY DAY SINCE 5 YEARS
     Route: 048
  5. TRUVADA [Concomitant]
     Indication: HIV INFECTION
     Dosage: EVERY DAY SINCE 5 YEARS
     Route: 048
  6. BENADRYL [Concomitant]
     Indication: INSOMNIA
     Dosage: AT BEDTIME SINCE 5 YEARS
     Route: 048
  7. RISPERIDONE [Concomitant]
     Indication: BIPOLAR DISORDER
     Dosage: EVERY DAY SINCE 5 YEARS
     Route: 048

REACTIONS (1)
  - Cough [Recovered/Resolved]
